FAERS Safety Report 19952637 (Version 1)
Quarter: 2021Q4

REPORT INFORMATION
  Report Type: Spontaneous
  Country: US (occurrence: US)
  Receive Date: 20211014
  Receipt Date: 20211014
  Transmission Date: 20220303
  Serious: No
  Sender: FDA-Public Use
  Company Number: ENDG21-01253

PATIENT
  Sex: Female

DRUGS (1)
  1. QUESTRAN [Suspect]
     Active Substance: CHOLESTYRAMINE
     Indication: Diarrhoea
     Dosage: UNK UNKNOWN, DAILY
     Route: 065

REACTIONS (2)
  - Throat tightness [Recovered/Resolved]
  - Off label use [Recovered/Resolved]
